FAERS Safety Report 4376342-5 (Version None)
Quarter: 2004Q2

REPORT INFORMATION
  Report Type: 
  Country: None (occurrence: None)
  Receive Date: 20040602
  Receipt Date: 20040309
  Transmission Date: 20050107
  Serious: Yes (Hospitalization)
  Sender: FDA-Public Use
  Company Number: US-JNJFOC- 20040302017

PATIENT
  Age: 65 Year
  Sex: Male

DRUGS (1)
  1. SPORANOX [Suspect]
     Indication: LUNG INFECTION
     Dosage: 20 ML, 2 IN 1 DAY, ORAL
     Route: 048
     Dates: start: 20040226

REACTIONS (2)
  - ASTHENIA [None]
  - DYSPNOEA [None]
